FAERS Safety Report 16581726 (Version 1)
Quarter: 2019Q3

REPORT INFORMATION
  Report Type: Spontaneous
  Country: TR (occurrence: TR)
  Receive Date: 20190716
  Receipt Date: 20190716
  Transmission Date: 20191004
  Serious: Yes (Other)
  Sender: FDA-Public Use
  Company Number: TR-ROCHE-2354489

PATIENT
  Age: 74 Year
  Sex: Male

DRUGS (5)
  1. RANIBIZUMAB. [Suspect]
     Active Substance: RANIBIZUMAB
     Indication: CHOROIDAL NEOVASCULARISATION
     Dosage: MONTHLY
     Route: 031
  2. CHLORAMBUCIL [Concomitant]
     Active Substance: CHLORAMBUCIL
     Indication: LYMPHOPROLIFERATIVE DISORDER
     Route: 065
  3. ALLOPURINOL. [Concomitant]
     Active Substance: ALLOPURINOL
     Indication: LYMPHOPROLIFERATIVE DISORDER
     Route: 065
  4. DEXAMETHASONE. [Concomitant]
     Active Substance: DEXAMETHASONE
     Indication: LYMPHOPROLIFERATIVE DISORDER
     Route: 065
  5. RANIBIZUMAB. [Suspect]
     Active Substance: RANIBIZUMAB
     Dosage: 6 IVR INJECTIONS WHEN NEEDED
     Route: 031

REACTIONS (2)
  - Macular degeneration [Unknown]
  - Therapy non-responder [Unknown]
